FAERS Safety Report 15790549 (Version 2)
Quarter: 2019Q1

REPORT INFORMATION
  Report Type: Spontaneous
  Country: IT (occurrence: IT)
  Receive Date: 20190104
  Receipt Date: 20190129
  Transmission Date: 20190417
  Serious: Yes (Life-Threatening, Other)
  Sender: FDA-Public Use
  Company Number: IT-PFIZER INC-2018534594

PATIENT
  Age: 29 Year
  Sex: Female

DRUGS (2)
  1. HEPARIN SODIUM. [Suspect]
     Active Substance: HEPARIN SODIUM
     Indication: DEEP VEIN THROMBOSIS
     Dosage: UNK (DURING PREGNANCY)
     Dates: start: 1998
  2. HEPARIN SODIUM. [Suspect]
     Active Substance: HEPARIN SODIUM
     Dosage: UNK (LOW MOLECULAR WEIGHT HEPARIN, DURING THE SECOND PREGNANCY)
     Dates: start: 1999

REACTIONS (10)
  - Renal artery stenosis [Recovered/Resolved]
  - Carotid artery stenosis [Unknown]
  - Pulmonary embolism [Unknown]
  - Shock [Unknown]
  - Thrombosis [Unknown]
  - Adrenal haemorrhage [Unknown]
  - Vascular pseudoaneurysm [Recovered/Resolved]
  - Immune thrombocytopenic purpura [Not Recovered/Not Resolved]
  - Hypersensitivity [Unknown]
  - Deep vein thrombosis [Unknown]

NARRATIVE: CASE EVENT DATE: 1998
